FAERS Safety Report 23518388 (Version 1)
Quarter: 2024Q1

REPORT INFORMATION
  Report Type: Spontaneous
  Country: JP (occurrence: JP)
  Receive Date: 20240213
  Receipt Date: 20240213
  Transmission Date: 20240410
  Serious: Yes (Death)
  Sender: FDA-Public Use
  Company Number: JP-BAYER-2024A020762

PATIENT
  Age: 72 Year
  Sex: Female
  Weight: 52.6 kg

DRUGS (2)
  1. STIVARGA [Suspect]
     Active Substance: REGORAFENIB
     Indication: Colon cancer
  2. STIVARGA [Suspect]
     Active Substance: REGORAFENIB
     Indication: NTRK gene fusion positive

REACTIONS (2)
  - NTRK gene fusion cancer [Fatal]
  - Colon cancer [Fatal]
